FAERS Safety Report 21400537 (Version 1)
Quarter: 2022Q4

REPORT INFORMATION
  Report Type: Spontaneous
  Country: CA (occurrence: CA)
  Receive Date: 20221003
  Receipt Date: 20221003
  Transmission Date: 20230112
  Serious: Yes (Other)
  Sender: FDA-Public Use
  Company Number: CA-JNJFOC-20220949171

PATIENT
  Age: 59 Year
  Sex: Female

DRUGS (11)
  1. STELARA [Suspect]
     Active Substance: USTEKINUMAB
     Indication: Crohn^s disease
     Dosage: AT WEEK 0, 180MG AT WEEKS 1 AND 2.
     Route: 040
  2. STELARA [Suspect]
     Active Substance: USTEKINUMAB
     Route: 058
  3. MESALAMINE [Concomitant]
     Active Substance: MESALAMINE
     Indication: Product used for unknown indication
  4. PANTOPRAZOLE [Concomitant]
     Active Substance: PANTOPRAZOLE
     Indication: Product used for unknown indication
  5. FENTANYL [Concomitant]
     Active Substance: FENTANYL
     Indication: Product used for unknown indication
     Route: 061
  6. MIRTAZAPINE [Concomitant]
     Active Substance: MIRTAZAPINE
     Indication: Product used for unknown indication
  7. QUETIAPINE [Concomitant]
     Active Substance: QUETIAPINE
     Indication: Product used for unknown indication
  8. AMLODIPINE [Concomitant]
     Active Substance: AMLODIPINE BESYLATE
     Indication: Product used for unknown indication
  9. VENLAFAXINE [Concomitant]
     Active Substance: VENLAFAXINE HYDROCHLORIDE
     Indication: Product used for unknown indication
  10. LOPERAMIDE [Concomitant]
     Active Substance: LOPERAMIDE
     Indication: Product used for unknown indication
  11. BACLOFEN [Concomitant]
     Active Substance: BACLOFEN
     Indication: Product used for unknown indication

REACTIONS (1)
  - Amyotrophic lateral sclerosis [Not Recovered/Not Resolved]
